FAERS Safety Report 5364806-7 (Version None)
Quarter: 2007Q2

REPORT INFORMATION
  Report Type: 
  Country: None (occurrence: None)
  Receive Date: 20070621
  Receipt Date: 20070611
  Transmission Date: 20071010
  Serious: Yes (Other)
  Sender: FDA-Public Use
  Company Number: PHEH2007US08559

PATIENT
  Age: 72 Year
  Sex: Female

DRUGS (5)
  1. ZELNORM [Suspect]
     Indication: DIARRHOEA
     Dosage: 6 MG, BID
     Route: 048
     Dates: start: 20050617, end: 20060101
  2. ANALGESICS [Concomitant]
     Route: 062
  3. ANTIEMETICS [Concomitant]
  4. OTHER ANTIDIARRHOEALS [Concomitant]
  5. ANTIDEPRESSANTS [Concomitant]

REACTIONS (4)
  - BILIARY TRACT DISORDER [None]
  - DIARRHOEA [None]
  - HEPATITIS [None]
  - MALAISE [None]
